FAERS Safety Report 4932725-3 (Version None)
Quarter: 2006Q1

REPORT INFORMATION
  Report Type: 
  Country: None (occurrence: None)
  Receive Date: 20060301
  Receipt Date: 20060301
  Transmission Date: 20060701
  Serious: Yes (Hospitalization)
  Sender: FDA-Public Use
  Company Number: None

PATIENT
  Age: 70 Year
  Sex: Male

DRUGS (4)
  1. FLUOROURACIL [Suspect]
     Indication: COLON CANCER
     Dates: start: 20060215, end: 20060225
  2. LEUCOVORIN CALCIUM [Suspect]
     Indication: COLON CANCER
     Dates: start: 20060215, end: 20060225
  3. OXALIPLATIN [Suspect]
     Indication: COLON CANCER
     Dates: start: 20060215, end: 20060225
  4. AVASTIN [Suspect]
     Dates: start: 20060215, end: 20060225

REACTIONS (1)
  - LARGE INTESTINE PERFORATION [None]
